FAERS Safety Report 18360815 (Version 3)
Quarter: 2020Q4

REPORT INFORMATION
  Report Type: Spontaneous
  Country: US (occurrence: US)
  Receive Date: 20201008
  Receipt Date: 20201216
  Transmission Date: 20210114
  Serious: No
  Sender: FDA-Public Use
  Company Number: US-PFIZER INC-2020385483

PATIENT
  Age: 67 Year
  Sex: Female

DRUGS (1)
  1. IBRANCE [Suspect]
     Active Substance: PALBOCICLIB
     Indication: BREAST CANCER FEMALE
     Dosage: 125 MG, CYCLIC(125 MG QD (ONCE A DAY) X 21 DAYS)
     Route: 048
     Dates: start: 20201009

REACTIONS (5)
  - Dizziness [Unknown]
  - Nausea [Unknown]
  - Dehydration [Unknown]
  - Paraesthesia [Not Recovered/Not Resolved]
  - Hypoaesthesia [Unknown]

NARRATIVE: CASE EVENT DATE: 2020
